FAERS Safety Report 15369958 (Version 4)
Quarter: 2020Q1

REPORT INFORMATION
  Report Type: Report from Study
  Country: CO (occurrence: CO)
  Receive Date: 20180911
  Receipt Date: 20200330
  Transmission Date: 20200409
  Serious: Yes (Hospitalization)
  Sender: FDA-Public Use
  Company Number: CO-ASTELLAS-2018US039862

PATIENT
  Age: 45 Year
  Sex: Female
  Weight: 53 kg

DRUGS (7)
  1. TACROLIMUS. [Suspect]
     Active Substance: TACROLIMUS
     Route: 048
     Dates: end: 20180830
  2. PRAZOSIN. [Concomitant]
     Active Substance: PRAZOSIN
     Indication: IMMUNOSUPPRESSION
     Route: 065
     Dates: start: 20170928
  3. CALCIUM [Concomitant]
     Active Substance: CALCIUM
     Indication: MINERAL SUPPLEMENTATION
     Route: 065
     Dates: start: 20170928
  4. TACROLIMUS. [Suspect]
     Active Substance: TACROLIMUS
     Indication: RENAL TRANSPLANT
     Route: 048
     Dates: start: 20170927
  5. LEVETIRACETAM. [Concomitant]
     Active Substance: LEVETIRACETAM
     Indication: EPILEPSY
     Route: 065
     Dates: start: 201801
  6. MYCOPHENOLATE [Concomitant]
     Active Substance: MYCOPHENOLIC ACID
     Indication: RENAL TRANSPLANT
     Route: 048
     Dates: start: 20170928
  7. TACROLIMUS. [Suspect]
     Active Substance: TACROLIMUS
     Route: 048
     Dates: end: 20200206

REACTIONS (3)
  - Immunosuppressant drug level increased [Recovering/Resolving]
  - Large intestine polyp [Recovered/Resolved]
  - Calcium deficiency [Recovered/Resolved]

NARRATIVE: CASE EVENT DATE: 20180904
